FAERS Safety Report 9301257 (Version 2)
Quarter: 2013Q2

REPORT INFORMATION
  Report Type: Spontaneous
  Country: FR (occurrence: FR)
  Receive Date: 20130521
  Receipt Date: 20130606
  Transmission Date: 20140414
  Serious: Yes (Hospitalization)
  Sender: FDA-Public Use
  Company Number: FR-GLAXOSMITHKLINE-B0891460A

PATIENT
  Age: 49 Year
  Sex: Male

DRUGS (6)
  1. REQUIP [Suspect]
     Indication: PARKINSON^S DISEASE
     Dosage: 8MG PER DAY
     Route: 048
     Dates: start: 2011, end: 20130124
  2. SINEMET [Suspect]
     Indication: PARKINSON^S DISEASE
     Dosage: 200MG UNKNOWN
     Route: 065
  3. STALEVO [Suspect]
     Indication: PARKINSON^S DISEASE
     Dosage: 600MG PER DAY
     Route: 048
  4. MANTADIX [Suspect]
     Indication: PARKINSON^S DISEASE
     Dosage: 200MG PER DAY
     Route: 048
     Dates: end: 20130124
  5. AZILECT [Concomitant]
     Dosage: 1MG PER DAY
     Route: 065
  6. CLOZAPINE [Concomitant]
     Dosage: 1.5UNIT PER DAY
     Route: 048
     Dates: start: 201108

REACTIONS (4)
  - Brief psychotic disorder with marked stressors [Recovered/Resolved]
  - Hallucination, auditory [Recovered/Resolved]
  - Persecutory delusion [Recovered/Resolved]
  - Judgement impaired [Recovered/Resolved]
